FAERS Safety Report 10143201 (Version 1)
Quarter: 2014Q2

REPORT INFORMATION
  Report Type: Spontaneous
  Country: US (occurrence: None)
  Receive Date: 20140429
  Receipt Date: 20140429
  Transmission Date: 20141212
  Serious: Yes (Other)
  Sender: FDA-Public Use
  Company Number: None

PATIENT
  Age: 65 Year
  Sex: Female
  Weight: 113.4 kg

DRUGS (1)
  1. MYRBETRIQ [Suspect]
     Dosage: SAMPLES; ONCE DAILY
     Route: 048

REACTIONS (3)
  - Heart rate increased [None]
  - Blood pressure increased [None]
  - Dyspnoea [None]
